FAERS Safety Report 7408579-2 (Version None)
Quarter: 2011Q2

REPORT INFORMATION
  Report Type: 
  Country: None (occurrence: None)
  Receive Date: 20110412
  Receipt Date: 20110405
  Transmission Date: 20111010
  Serious: Yes (Hospitalization)
  Sender: FDA-Public Use
  Company Number: US-PFIZER INC-2011061297

PATIENT
  Sex: Male
  Weight: 99.9 kg

DRUGS (10)
  1. DEXRAZOXANE [Suspect]
     Indication: SARCOMA
     Dosage: 1800 MG, UNK
     Route: 042
     Dates: start: 20110208
  2. PDGFRA [Suspect]
     Indication: SARCOMA
     Dosage: 1500 MG, UNK
     Route: 042
     Dates: start: 20101116, end: 20110301
  3. PDGFRA [Suspect]
     Indication: LEIOMYOSARCOMA METASTATIC
     Dosage: LIQUID REGIMEN # 2
     Dates: start: 20110315
  4. OMEPRAZOLE [Concomitant]
     Dosage: UNK
  5. ONDANSETRON [Concomitant]
     Dosage: UNK
  6. EMEND [Concomitant]
     Dosage: UNK
  7. LOVENOX [Concomitant]
     Dosage: UNK
  8. DOXORUBICIN HCL [Suspect]
     Indication: SARCOMA
     Dosage: 180 MG, UNK
     Route: 042
     Dates: start: 20101116
  9. SENNA ALEXANDRINA [Concomitant]
     Dosage: UNK
  10. PEGFILGRASTIM [Concomitant]
     Dosage: UNK
     Dates: start: 20110301

REACTIONS (1)
  - FEBRILE NEUTROPENIA [None]
